FAERS Safety Report 15305293 (Version 2)
Quarter: 2018Q3

REPORT INFORMATION
  Report Type: Spontaneous
  Country: US (occurrence: US)
  Receive Date: 20180822
  Receipt Date: 20180829
  Transmission Date: 20181010
  Serious: No
  Sender: FDA-Public Use
  Company Number: US-BIOGEN-2018BI00623666

PATIENT
  Sex: Female

DRUGS (2)
  1. TYSABRI [Suspect]
     Active Substance: NATALIZUMAB
     Indication: MULTIPLE SCLEROSIS
     Route: 065
     Dates: start: 20160518
  2. TYSABRI [Suspect]
     Active Substance: NATALIZUMAB
     Route: 065
     Dates: start: 20140926, end: 20160107

REACTIONS (8)
  - Pain [Unknown]
  - Dizziness postural [Unknown]
  - Hemianaesthesia [Unknown]
  - Drug dose omission [Unknown]
  - Back pain [Unknown]
  - Visual impairment [Not Recovered/Not Resolved]
  - Migraine [Unknown]
  - Headache [Unknown]
